FAERS Safety Report 6418925-4 (Version None)
Quarter: 2009Q4

REPORT INFORMATION
  Report Type: 
  Country: None (occurrence: None)
  Receive Date: 20091029
  Receipt Date: 20091016
  Transmission Date: 20100525
  Serious: Yes (Other)
  Sender: FDA-Public Use
  Company Number: TR-RANBAXY-2009RR-28561

PATIENT
  Age: 45 Year
  Sex: Male

DRUGS (3)
  1. AMLODIPINE [Suspect]
     Dosage: 20 MG, UNK
  2. NAPROXEN [Suspect]
     Dosage: 2200 MG, UNK
  3. COLCHICINE [Suspect]
     Dosage: 5 MG, UNK

REACTIONS (1)
  - SUICIDE ATTEMPT [None]
